FAERS Safety Report 7298556-7 (Version None)
Quarter: 2011Q1

REPORT INFORMATION
  Report Type: 
  Country: None (occurrence: None)
  Receive Date: 20110217
  Receipt Date: 20110208
  Transmission Date: 20110831
  Serious: Yes (Death, Hospitalization)
  Sender: FDA-Public Use
  Company Number: US-SANOFI-AVENTIS-2010SA076792

PATIENT
  Age: 62 Year
  Sex: Female
  Weight: 36.36 kg

DRUGS (6)
  1. FERRLECIT [Suspect]
     Route: 065
     Dates: start: 20101203
  2. ALENDRONATE [Concomitant]
  3. OMEPRAZOLE [Concomitant]
     Route: 048
  4. ATORVASTATIN [Concomitant]
     Route: 048
  5. DICYCLOMINE [Concomitant]
     Route: 048
  6. VALSARTAN [Concomitant]
     Route: 048

REACTIONS (15)
  - PNEUMONIA [None]
  - ARTHRALGIA [None]
  - DIZZINESS [None]
  - DYSPNOEA [None]
  - CARDIAC FAILURE CONGESTIVE [None]
  - HYPOXIA [None]
  - METABOLIC ACIDOSIS [None]
  - HYPERTENSION [None]
  - RHABDOMYOLYSIS [None]
  - PAIN IN EXTREMITY [None]
  - HYPERSENSITIVITY [None]
  - RESPIRATORY FAILURE [None]
  - ACUTE RESPIRATORY DISTRESS SYNDROME [None]
  - NAUSEA [None]
  - OEDEMA PERIPHERAL [None]
